FAERS Safety Report 16240172 (Version 3)
Quarter: 2019Q3

REPORT INFORMATION
  Report Type: Spontaneous
  Country: US (occurrence: US)
  Receive Date: 20190425
  Receipt Date: 20190719
  Transmission Date: 20191004
  Serious: Yes (Other)
  Sender: FDA-Public Use
  Company Number: US-ASTRAZENECA-2018SF00027

PATIENT
  Age: 20352 Day
  Sex: Male

DRUGS (18)
  1. PRILOSEC [Suspect]
     Active Substance: OMEPRAZOLE MAGNESIUM
     Indication: GASTROOESOPHAGEAL REFLUX DISEASE
     Route: 048
     Dates: start: 2009
  2. LANTUS SOLOSTAR [Concomitant]
     Active Substance: INSULIN GLARGINE
  3. INSULIN [Concomitant]
     Active Substance: INSULIN NOS
  4. DIOVAN [Concomitant]
     Active Substance: VALSARTAN
  5. RANITIDINE. [Concomitant]
     Active Substance: RANITIDINE
  6. PRILOSEC [Suspect]
     Active Substance: OMEPRAZOLE MAGNESIUM
     Indication: GASTROOESOPHAGEAL REFLUX DISEASE
     Route: 048
     Dates: start: 20090825, end: 20090916
  7. METOPROLOL. [Concomitant]
     Active Substance: METOPROLOL
  8. ALBUTEROL. [Concomitant]
     Active Substance: ALBUTEROL
  9. COZAAR [Concomitant]
     Active Substance: LOSARTAN POTASSIUM
  10. STARLIX [Concomitant]
     Active Substance: NATEGLINIDE
  11. DICLOFENAC [Concomitant]
     Active Substance: DICLOFENAC
  12. LOVASTATIN. [Concomitant]
     Active Substance: LOVASTATIN
  13. LISINOPRIL. [Concomitant]
     Active Substance: LISINOPRIL
  14. TRAMADOL. [Concomitant]
     Active Substance: TRAMADOL
  15. ASPIRIN. [Concomitant]
     Active Substance: ASPIRIN
  16. PRILOSEC [Suspect]
     Active Substance: OMEPRAZOLE MAGNESIUM
     Indication: GASTROOESOPHAGEAL REFLUX DISEASE
     Route: 048
  17. MELOXICAM. [Concomitant]
     Active Substance: MELOXICAM
  18. ATORVASTATIN [Concomitant]
     Active Substance: ATORVASTATIN

REACTIONS (3)
  - Renal failure [Unknown]
  - Chronic kidney disease [Not Recovered/Not Resolved]
  - Acute kidney injury [Unknown]

NARRATIVE: CASE EVENT DATE: 20090807
